FAERS Safety Report 11080069 (Version 1)
Quarter: 2015Q2

REPORT INFORMATION
  Report Type: Spontaneous
  Country: JP (occurrence: JP)
  Receive Date: 20150430
  Receipt Date: 20150430
  Transmission Date: 20150821
  Serious: Yes (Hospitalization)
  Sender: FDA-Public Use
  Company Number: JP-ASTRAZENECA-2015SE39775

PATIENT
  Age: 89 Year
  Sex: Female

DRUGS (9)
  1. CRESTOR [Suspect]
     Active Substance: ROSUVASTATIN CALCIUM
     Indication: HYPERLIPIDAEMIA
     Route: 048
  2. OMEPRAL [Concomitant]
     Active Substance: OMEPRAZOLE
     Dosage: 20
     Route: 048
  3. MAGLAX [Concomitant]
     Active Substance: MAGNESIUM OXIDE
     Route: 065
  4. NORVASC [Concomitant]
     Active Substance: AMLODIPINE BESYLATE
     Route: 065
  5. AMOBAN [Concomitant]
     Active Substance: ZOPICLONE
     Route: 065
  6. ITRIZOLE [Suspect]
     Active Substance: ITRACONAZOLE
     Dosage: DOSE UNKNOWN
     Route: 065
  7. SYNTHETIC ANTIBACTERIALS [Concomitant]
     Active Substance: UNSPECIFIED INGREDIENT
     Route: 065
  8. NEW QUINOLONE [Concomitant]
  9. ASPIRIN. [Concomitant]
     Active Substance: ASPIRIN
     Route: 048

REACTIONS (2)
  - Blood creatine phosphokinase increased [Recovered/Resolved]
  - White blood cell count increased [Unknown]
